FAERS Safety Report 7234176-8 (Version None)
Quarter: 2011Q1

REPORT INFORMATION
  Report Type: 
  Country: None (occurrence: None)
  Receive Date: 20110119
  Receipt Date: 20101123
  Transmission Date: 20110831
  Serious: Yes (Other)
  Sender: FDA-Public Use
  Company Number: US-BAYER-2011-005558

PATIENT
  Sex: Male

DRUGS (1)
  1. VANQUISH [Suspect]
     Dosage: 2 DF, ONCE
     Route: 048
     Dates: start: 20101123

REACTIONS (4)
  - HAEMATEMESIS [None]
  - NAUSEA [None]
  - DYSPEPSIA [None]
  - FAECES DISCOLOURED [None]
